FAERS Safety Report 8766734 (Version 2)
Quarter: 2012Q4

REPORT INFORMATION
  Report Type: 
  Country: US (occurrence: US)
  Receive Date: 20120904
  Receipt Date: 20120913
  Transmission Date: 20130627
  Serious: Yes (Other)
  Sender: FDA-Public Use
  Company Number: US-BRISTOL-MYERS SQUIBB COMPANY-16897092

PATIENT
  Age: 52 Year
  Sex: Female
  Weight: 88 kg

DRUGS (2)
  1. ABATACEPT SUBQ INJECTION 125MG/ML [Suspect]
     Indication: RHEUMATOID ARTHRITIS
     Dosage: Prescription #: 60009644008
first dose:02Apr2012.
     Route: 058
     Dates: start: 20120402
  2. METHOTREXATE [Suspect]

REACTIONS (3)
  - Foot operation [Unknown]
  - Drug administration error [Unknown]
  - Product quality issue [Unknown]
